FAERS Safety Report 5032069-8 (Version None)
Quarter: 2006Q2

REPORT INFORMATION
  Report Type: 
  Country: None (occurrence: None)
  Receive Date: 20060619
  Receipt Date: 20060601
  Transmission Date: 20061013
  Serious: Yes (Hospitalization, Disabling)
  Sender: FDA-Public Use
  Company Number: 408673

PATIENT
  Age: 22 Year
  Sex: Female
  Weight: 83.5 kg

DRUGS (1)
  1. ACCUTANE [Suspect]
     Indication: ACNE
     Dosage: 40 MG 1 PER DAY ORAL
     Route: 048
     Dates: start: 20030415, end: 20030915

REACTIONS (59)
  - ACTIVITIES OF DAILY LIVING IMPAIRED [None]
  - ANAL DISCOMFORT [None]
  - ANXIETY [None]
  - BIPOLAR DISORDER [None]
  - BLOOD IMMUNOGLOBULIN A INCREASED [None]
  - BLOOD IMMUNOGLOBULIN G INCREASED [None]
  - CERVICAL DYSPLASIA [None]
  - CHANGE OF BOWEL HABIT [None]
  - COLITIS ULCERATIVE [None]
  - CONDITION AGGRAVATED [None]
  - CROHN'S DISEASE [None]
  - DEPRESSION [None]
  - DERMATITIS [None]
  - DRUG INEFFECTIVE [None]
  - DRY EYE [None]
  - DRY SKIN [None]
  - ERUCTATION [None]
  - FATIGUE [None]
  - FEAR OF DISEASE [None]
  - FLATULENCE [None]
  - FUNGAL INFECTION [None]
  - GASTROINTESTINAL MOTILITY DISORDER [None]
  - GASTROOESOPHAGEAL REFLUX DISEASE [None]
  - GLUCOSE TOLERANCE IMPAIRED [None]
  - HAEMATOCHEZIA [None]
  - HIRSUTISM [None]
  - HUMAN PAPILLOMA VIRUS TEST POSITIVE [None]
  - HYPERGLYCAEMIA [None]
  - HYPERLIPIDAEMIA [None]
  - HYPERSENSITIVITY [None]
  - ILEITIS [None]
  - IMMUNE SYSTEM DISORDER [None]
  - INFLAMMATORY BOWEL DISEASE [None]
  - INTESTINAL HAEMORRHAGE [None]
  - JOINT SPRAIN [None]
  - LIP DRY [None]
  - MAJOR DEPRESSION [None]
  - MIGRAINE [None]
  - MULTI-ORGAN DISORDER [None]
  - MUSCLE SPASMS [None]
  - MYALGIA [None]
  - NAUSEA [None]
  - NECK PAIN [None]
  - OVARIAN CYST [None]
  - PAIN [None]
  - PARAESTHESIA [None]
  - POLLAKIURIA [None]
  - PYREXIA [None]
  - RECTAL HAEMORRHAGE [None]
  - RHINITIS ALLERGIC [None]
  - SELF ESTEEM DECREASED [None]
  - SHOULDER PAIN [None]
  - SINUSITIS [None]
  - STRESS [None]
  - SUICIDAL IDEATION [None]
  - URINARY TRACT INFECTION [None]
  - VIRAL INFECTION [None]
  - VOMITING [None]
  - WEIGHT INCREASED [None]
